FAERS Safety Report 13742440 (Version 2)
Quarter: 2017Q3

REPORT INFORMATION
  Report Type: Spontaneous
  Country: US (occurrence: US)
  Receive Date: 20170711
  Receipt Date: 20170821
  Transmission Date: 20171127
  Serious: Yes (Other)
  Sender: FDA-Public Use
  Company Number: US-BAYER-2017-126747

PATIENT
  Age: 55 Year
  Sex: Female

DRUGS (2)
  1. CIPRO [Suspect]
     Active Substance: CIPROFLOXACIN HYDROCHLORIDE
     Indication: BACTERIAL INFECTION
     Dosage: 500 MG, UNK
     Dates: start: 20161115, end: 20161118
  2. CIPRO [Suspect]
     Active Substance: CIPROFLOXACIN HYDROCHLORIDE
     Indication: SINUSITIS

REACTIONS (17)
  - Mitochondrial toxicity [Not Recovered/Not Resolved]
  - Toxicity to various agents [None]
  - General physical health deterioration [None]
  - Adverse event [Not Recovered/Not Resolved]
  - Nausea [None]
  - Peripheral swelling [None]
  - Tendonitis [Not Recovered/Not Resolved]
  - Tendonitis [Not Recovered/Not Resolved]
  - Pain in extremity [None]
  - Mental disorder [Not Recovered/Not Resolved]
  - Epicondylitis [Recovering/Resolving]
  - Neuropathy peripheral [None]
  - Dizziness [Not Recovered/Not Resolved]
  - Hemianaesthesia [None]
  - Asthenia [None]
  - Disturbance in attention [None]
  - Visual impairment [Not Recovered/Not Resolved]

NARRATIVE: CASE EVENT DATE: 20161117
